FAERS Safety Report 12179507 (Version 1)
Quarter: 2016Q1

REPORT INFORMATION
  Report Type: Spontaneous
  Country: IN (occurrence: IN)
  Receive Date: 20160315
  Receipt Date: 20160315
  Transmission Date: 20160526
  Serious: Yes (Death)
  Sender: FDA-Public Use
  Company Number: IN-PFIZER INC-2016003983

PATIENT
  Age: 62 Year
  Sex: Male

DRUGS (1)
  1. SUTENT [Suspect]
     Active Substance: SUNITINIB MALATE
     Indication: METASTATIC RENAL CELL CARCINOMA
     Dosage: 50 MG, CYCLIC (50 MG ONCE DAILY FOR FOUR WEEKS ON AND TWO WEEKS BREAK PERIOD)
     Route: 048
     Dates: start: 20151126

REACTIONS (8)
  - Blood urine present [Unknown]
  - Mouth ulceration [Recovering/Resolving]
  - Swelling face [Unknown]
  - Disease progression [Unknown]
  - Metastatic renal cell carcinoma [Unknown]
  - Haemoptysis [Unknown]
  - Death [Fatal]
  - Skin depigmentation [Recovering/Resolving]

NARRATIVE: CASE EVENT DATE: 201512
